FAERS Safety Report 6357588-3 (Version None)
Quarter: 2009Q3

REPORT INFORMATION
  Report Type: 
  Country: None (occurrence: None)
  Receive Date: 20090916
  Receipt Date: 20090910
  Transmission Date: 20100115
  Serious: Yes (Death, Life-Threatening)
  Sender: FDA-Public Use
  Company Number: PHHY2009JP39506

PATIENT
  Sex: Female

DRUGS (8)
  1. AMN107 AMN+CAP [Suspect]
     Indication: ACUTE LYMPHOCYTIC LEUKAEMIA
     Dosage: 800 MG
     Route: 048
     Dates: start: 20090414, end: 20090615
  2. PROGRAF [Concomitant]
     Indication: ACUTE LYMPHOCYTIC LEUKAEMIA
     Dosage: 0.6MG/KG
     Route: 042
     Dates: start: 20090511, end: 20090702
  3. PREDONINE [Concomitant]
     Indication: ACUTE LYMPHOCYTIC LEUKAEMIA
     Dosage: 50 MG
     Route: 042
     Dates: start: 20090519, end: 20090702
  4. NEORAL [Concomitant]
     Indication: ACUTE LYMPHOCYTIC LEUKAEMIA
     Dosage: 120 MG
     Route: 048
     Dates: start: 20090414, end: 20090510
  5. URSO 250 [Concomitant]
     Indication: PROPHYLAXIS
     Dosage: 600 MG
     Route: 048
     Dates: start: 20090414, end: 20090615
  6. DIFLUCAN [Concomitant]
     Indication: PROPHYLAXIS
     Dosage: 200 MG
     Route: 048
     Dates: start: 20090414, end: 20090615
  7. BAKTAR [Concomitant]
     Indication: PROPHYLAXIS
     Dosage: 1 DF
     Route: 048
     Dates: start: 20090414, end: 20090615
  8. ZOVIRAX [Concomitant]
     Indication: PROPHYLAXIS
     Dosage: 200 MG
     Route: 048
     Dates: start: 20090414, end: 20090615

REACTIONS (8)
  - ACUTE HEPATIC FAILURE [None]
  - BLOOD UREA INCREASED [None]
  - BLOOD URIC ACID INCREASED [None]
  - DIARRHOEA [None]
  - ELECTROCARDIOGRAM QT PROLONGED [None]
  - GASTROINTESTINAL HAEMORRHAGE [None]
  - GASTROINTESTINAL NECROSIS [None]
  - GRAFT VERSUS HOST DISEASE [None]
